FAERS Safety Report 9202420 (Version 5)
Quarter: 2014Q1

REPORT INFORMATION
  Report Type: Spontaneous
  Country: CA (occurrence: CA)
  Receive Date: 20130401
  Receipt Date: 20140217
  Transmission Date: 20141002
  Serious: Yes (Death, Hospitalization, Other)
  Sender: FDA-Public Use
  Company Number: CA-AMGEN-CANSP2013021003

PATIENT
  Age: 72 Year
  Sex: Female
  Weight: 60 kg

DRUGS (2)
  1. PROLIA [Suspect]
     Indication: OSTEOPOROSIS POSTMENOPAUSAL
     Dosage: 60 MG, Q6MO
     Route: 058
     Dates: start: 20121023, end: 20130423
  2. PRADAXA [Concomitant]

REACTIONS (11)
  - Hospitalisation [Unknown]
  - Intestinal obstruction [Unknown]
  - Brain neoplasm [Unknown]
  - Death [Fatal]
  - Surgery [Unknown]
  - Diarrhoea [Unknown]
  - Headache [Unknown]
  - Hypertension [Unknown]
  - Asthenia [Not Recovered/Not Resolved]
  - Back pain [Unknown]
  - Constipation [Not Recovered/Not Resolved]
